FAERS Safety Report 5745870-X (Version None)
Quarter: 2008Q2

REPORT INFORMATION
  Report Type: 
  Country: None (occurrence: None)
  Receive Date: 20080521
  Receipt Date: 20080513
  Transmission Date: 20081010
  Serious: Yes (Other)
  Sender: FDA-Public Use
  Company Number: US-GENENTECH-260511

PATIENT
  Age: 78 Year
  Sex: Female

DRUGS (2)
  1. LUCENTIS [Suspect]
     Indication: MACULAR DEGENERATION
     Dosage: 0.5 MG, UNKNOWN
     Route: 031
  2. BEVACIZUMAB [Suspect]
     Indication: MACULAR DEGENERATION
     Dosage: UNK, UNKNOWN
     Route: 065

REACTIONS (1)
  - INTRAOCULAR PRESSURE INCREASED [None]
